FAERS Safety Report 5217498-1 (Version None)
Quarter: 2007Q1

REPORT INFORMATION
  Report Type: 
  Country: None (occurrence: None)
  Receive Date: 20070124
  Receipt Date: 20070118
  Transmission Date: 20070707
  Serious: Yes (Other)
  Sender: FDA-Public Use
  Company Number: 2006AC02384

PATIENT
  Sex: Female

DRUGS (1)
  1. ZESTORETIC [Suspect]
     Dosage: 20/12.5
     Dates: start: 20061216

REACTIONS (2)
  - FEELING ABNORMAL [None]
  - URINARY RETENTION [None]
